FAERS Safety Report 6515842-6 (Version None)
Quarter: 2009Q4

REPORT INFORMATION
  Report Type: 
  Country: None (occurrence: None)
  Receive Date: 20091211
  Receipt Date: 20081118
  Transmission Date: 20100525
  Serious: Yes (Other)
  Sender: FDA-Public Use
  Company Number: ALL1-2008-03228

PATIENT
  Age: 6 Year
  Sex: Male
  Weight: 22.2 kg

DRUGS (1)
  1. ADDERALL XR 10 [Suspect]
     Indication: ATTENTION DEFICIT/HYPERACTIVITY DISORDER
     Dosage: 10 MG, 1X/DAY:QD, ORAL
     Route: 048
     Dates: start: 20080301

REACTIONS (4)
  - AGGRESSION [None]
  - CRYING [None]
  - DECREASED APPETITE [None]
  - WEIGHT DECREASED [None]
